FAERS Safety Report 22132774 (Version 4)
Quarter: 2023Q2

REPORT INFORMATION
  Report Type: Report from Study
  Country: US (occurrence: US)
  Receive Date: 20230323
  Receipt Date: 20230630
  Transmission Date: 20230721
  Serious: Yes (Death, Hospitalization, Other)
  Sender: FDA-Public Use
  Company Number: US-JAZZ PHARMACEUTICALS-2023-US-006792

PATIENT
  Sex: Female

DRUGS (2)
  1. EPIDIOLEX [Suspect]
     Active Substance: CANNABIDIOL
     Indication: Lennox-Gastaut syndrome
     Dosage: 6 MILLILITER
     Route: 048
     Dates: start: 202211
  2. EPIDIOLEX [Suspect]
     Active Substance: CANNABIDIOL
     Indication: Epilepsy
     Dosage: UNK
     Dates: start: 20210923, end: 20230316

REACTIONS (5)
  - Respiratory failure [Fatal]
  - Hypoalbuminaemia [Unknown]
  - Hypoxia [Unknown]
  - Generalised oedema [Unknown]
  - Off label use [Unknown]
